FAERS Safety Report 24366729 (Version 1)
Quarter: 2024Q3

REPORT INFORMATION
  Report Type: Spontaneous
  Country: US (occurrence: None)
  Receive Date: 20240925
  Receipt Date: 20240925
  Transmission Date: 20241017
  Serious: No
  Sender: Public
  Company Number: None

PATIENT
  Age: 84 Year
  Sex: Female
  Weight: 49.5 kg

DRUGS (14)
  1. VALACYCLOVIR [Suspect]
     Active Substance: VALACYCLOVIR HYDROCHLORIDE
     Indication: Herpes zoster
     Dosage: FREQUENCY : DAILY;?
     Route: 048
     Dates: start: 20240721
  2. SIMVASTATIN [Concomitant]
     Active Substance: SIMVASTATIN
  3. ACETAMINOPHEN [Concomitant]
     Active Substance: ACETAMINOPHEN
  4. ONDANSETRON [Concomitant]
     Active Substance: ONDANSETRON
  5. LORAZEPAM [Concomitant]
     Active Substance: LORAZEPAM
  6. GABAPENTIN [Concomitant]
     Active Substance: GABAPENTIN
     Dates: start: 20240721, end: 20240721
  7. SYNTHROID [Concomitant]
     Active Substance: LEVOTHYROXINE SODIUM
  8. RYTARY [Concomitant]
     Active Substance: CARBIDOPA\LEVODOPA
  9. MIDODRINE [Concomitant]
     Active Substance: MIDODRINE
  10. LAMOTRIGINE [Concomitant]
     Active Substance: LAMOTRIGINE
  11. CITALOPRAM [Concomitant]
     Active Substance: CITALOPRAM
  12. SEVELAMER [Concomitant]
     Active Substance: SEVELAMER
  13. CINACALCET [Concomitant]
     Active Substance: CINACALCET
  14. MIRTAZAPINE [Concomitant]
     Active Substance: MIRTAZAPINE

REACTIONS (5)
  - Hallucination, auditory [None]
  - Confusional state [None]
  - Sleep disorder [None]
  - Anxiety [None]
  - Paranoia [None]

NARRATIVE: CASE EVENT DATE: 20240723
